FAERS Safety Report 8043106-0 (Version None)
Quarter: 2012Q1

REPORT INFORMATION
  Report Type: 
  Country: None (occurrence: None)
  Receive Date: 20120112
  Receipt Date: 20120110
  Transmission Date: 20120608
  Serious: Yes (Hospitalization)
  Sender: FDA-Public Use
  Company Number: JP-BAYER-2012-003046

PATIENT
  Sex: Female

DRUGS (2)
  1. AVELOX [Suspect]
     Indication: LARYNGITIS
  2. AVELOX [Suspect]
     Indication: PHARYNGITIS
     Dosage: DAILY DOSE 400 MG
     Route: 048
     Dates: start: 20111226

REACTIONS (1)
  - ANAPHYLACTIC REACTION [None]
